FAERS Safety Report 23334010 (Version 1)
Quarter: 2023Q4

REPORT INFORMATION
  Report Type: Spontaneous
  Country: IT (occurrence: IT)
  Receive Date: 20231223
  Receipt Date: 20231223
  Transmission Date: 20240110
  Serious: Yes (Other)
  Sender: FDA-Public Use
  Company Number: IT-JNJFOC-20231237035

PATIENT

DRUGS (1)
  1. IMBRUVICA [Suspect]
     Active Substance: IBRUTINIB
     Indication: Chronic lymphocytic leukaemia
     Route: 048

REACTIONS (12)
  - Neutropenia [Unknown]
  - Atrial fibrillation [Unknown]
  - Neoplasm malignant [Unknown]
  - Acute coronary syndrome [Unknown]
  - Lymphocytosis [Unknown]
  - Haematotoxicity [Unknown]
  - Cardiac failure [Unknown]
  - Anaemia [Unknown]
  - Haemorrhage [Unknown]
  - Infection [Unknown]
  - Hypertension [Unknown]
  - Richter^s syndrome [Unknown]
